FAERS Safety Report 15883374 (Version 2)
Quarter: 2019Q1

REPORT INFORMATION
  Report Type: Spontaneous
  Country: DE (occurrence: DE)
  Receive Date: 20190129
  Receipt Date: 20190204
  Transmission Date: 20190417
  Serious: Yes (Hospitalization, Other)
  Sender: FDA-Public Use
  Company Number: DE-ACCORD-103772

PATIENT
  Age: 48 Year
  Sex: Male
  Weight: 85.3 kg

DRUGS (3)
  1. APIXABAN [Concomitant]
     Active Substance: APIXABAN
     Dosage: 5 MG, 1-0-1-0, TABLETS?10 MILLIGRAM DAILY, 5 MG, TWICE DAILY (1-0-1-0)
     Route: 048
  2. BENDAMUSTINE/BENDAMUSTINE HYDROCHLORIDE [Suspect]
     Active Substance: BENDAMUSTINE HYDROCHLORIDE
     Indication: PRODUCT USED FOR UNKNOWN INDICATION
     Dosage: 90 MD / M2, ACCORDING TO THE SCHEME, SOLUTION FOR INJECTION / INFUSION
     Route: 042
  3. RITUXIMAB. [Suspect]
     Active Substance: RITUXIMAB
     Indication: PRODUCT USED FOR UNKNOWN INDICATION
     Dosage: 375 MG / M2, ACCORDING TO THE SCHEME, SOLUTION FOR INJECTION / INFUSION
     Route: 042

REACTIONS (9)
  - Cough [Unknown]
  - Prescribed underdose [Unknown]
  - Rhinitis [Unknown]
  - Pyrexia [Unknown]
  - B-cell lymphoma [Unknown]
  - Upper respiratory tract irritation [Unknown]
  - Headache [Unknown]
  - Febrile neutropenia [Unknown]
  - Myalgia [Unknown]
